FAERS Safety Report 10248491 (Version 2)
Quarter: 2014Q3

REPORT INFORMATION
  Report Type: Spontaneous
  Country: US (occurrence: US)
  Receive Date: 20140620
  Receipt Date: 20140709
  Transmission Date: 20150326
  Serious: No
  Sender: FDA-Public Use
  Company Number: US-009507513-1406USA008694

PATIENT
  Age: 29 Year
  Sex: Female
  Weight: 117.91 kg

DRUGS (1)
  1. NEXPLANON [Suspect]
     Active Substance: ETONOGESTREL
     Indication: CONTRACEPTION
     Dosage: 68 MG, ONCE EVERY 3 YEARS, IN HER ARM
     Route: 059
     Dates: start: 20130814

REACTIONS (4)
  - Weight increased [Unknown]
  - Hypomenorrhoea [Unknown]
  - Dysmenorrhoea [Unknown]
  - Device kink [Unknown]

NARRATIVE: CASE EVENT DATE: 20140616
